FAERS Safety Report 7777293-6 (Version None)
Quarter: 2011Q3

REPORT INFORMATION
  Report Type: 
  Country: None (occurrence: None)
  Receive Date: 20110926
  Receipt Date: 20110913
  Transmission Date: 20111222
  Serious: Yes (Hospitalization, Other)
  Sender: FDA-Public Use
  Company Number: US-BAYER-2011-003446

PATIENT
  Age: 42 Year
  Sex: Female
  Weight: 116.55 kg

DRUGS (7)
  1. ZOFRAN [Concomitant]
  2. LEVAQUIN [Concomitant]
  3. NEXIUM [Concomitant]
  4. TORADOL [Concomitant]
  5. YAZ [Suspect]
     Indication: MENSTRUAL CYCLE MANAGEMENT
     Dosage: UNK
     Route: 048
     Dates: start: 20080301, end: 20080801
  6. PAXIL [Concomitant]
  7. CYMBALTA [Concomitant]

REACTIONS (8)
  - EMOTIONAL DISTRESS [None]
  - ABDOMINAL PAIN [None]
  - MENTAL DISORDER [None]
  - BILIARY DYSKINESIA [None]
  - GALLBLADDER DISORDER [None]
  - ANXIETY [None]
  - DEEP VEIN THROMBOSIS [None]
  - CHOLECYSTITIS CHRONIC [None]
